FAERS Safety Report 9027349 (Version 1)
Quarter: 2013Q1

REPORT INFORMATION
  Report Type: Spontaneous
  Country: CA (occurrence: CA)
  Receive Date: 20130124
  Receipt Date: 20130124
  Transmission Date: 20140127
  Serious: Yes (Hospitalization, Other)
  Sender: FDA-Public Use
  Company Number: CA-AMGEN-CANSP2012075538

PATIENT
  Age: 68 Year
  Sex: Female
  Weight: 68.03 kg

DRUGS (6)
  1. ENBREL [Suspect]
     Indication: PSORIATIC ARTHROPATHY
     Dosage: 50 MG ONCE IN 3 WEEKS UNK
     Route: 058
     Dates: start: 200903
  2. METHOTREXATE [Concomitant]
     Indication: PSORIATIC ARTHROPATHY
     Dosage: 25 MG, QWK
     Route: 058
  3. INDERAL [Concomitant]
     Dosage: UNK
  4. TYLENOL /00020001/ [Concomitant]
     Dosage: UNK
  5. HYDROCHLOROTHIAZIDE [Concomitant]
     Dosage: UNK
  6. COVERSYL                           /00790702/ [Concomitant]
     Dosage: UNK

REACTIONS (5)
  - Colon cancer [Unknown]
  - Arthritis [Recovering/Resolving]
  - Local swelling [Recovering/Resolving]
  - Skin exfoliation [Recovering/Resolving]
  - Injection site pain [Not Recovered/Not Resolved]
